FAERS Safety Report 17690583 (Version 1)
Quarter: 2020Q2

REPORT INFORMATION
  Report Type: Report from Study
  Country: US (occurrence: US)
  Receive Date: 20200421
  Receipt Date: 20200421
  Transmission Date: 20200714
  Serious: No
  Sender: FDA-Public Use
  Company Number: US-INCYTE CORPORATION-2020IN003246

PATIENT

DRUGS (3)
  1. JAKAFI [Suspect]
     Active Substance: RUXOLITINIB
     Indication: MYELOFIBROSIS
     Dosage: 15 MILLIGRAM, BID
     Route: 065
  2. JAKAFI [Suspect]
     Active Substance: RUXOLITINIB
     Indication: POLYCYTHAEMIA VERA
     Dosage: 10 MILLIGRAM, BID
     Route: 065
  3. ASPIRIN [ACETYLSALICYLIC ACID] [Concomitant]
     Active Substance: ASPIRIN
     Indication: PRODUCT USED FOR UNKNOWN INDICATION
     Route: 065

REACTIONS (12)
  - Bone pain [Unknown]
  - Contusion [Recovered/Resolved]
  - Fatigue [Unknown]
  - Ill-defined disorder [Unknown]
  - Product dose omission [Unknown]
  - Weight increased [Unknown]
  - Arthralgia [Unknown]
  - Therapy non-responder [Unknown]
  - Blood count abnormal [Unknown]
  - Platelet count abnormal [Unknown]
  - Pain in extremity [Unknown]
  - Hypersensitivity [Unknown]
